FAERS Safety Report 5197156-2 (Version None)
Quarter: 2007Q1

REPORT INFORMATION
  Report Type: 
  Country: None (occurrence: None)
  Receive Date: 20070103
  Receipt Date: 20061221
  Transmission Date: 20070707
  Serious: No
  Sender: FDA-Public Use
  Company Number: PT-GLAXOSMITHKLINE-B0449935A

PATIENT
  Age: 2 Year
  Sex: Male

DRUGS (1)
  1. CLAVAMOX [Suspect]
     Dosage: 10ML PER DAY
     Route: 048
     Dates: start: 20061003

REACTIONS (5)
  - DERMATITIS ALLERGIC [None]
  - HYPERTHERMIA [None]
  - PHARMACEUTICAL PRODUCT COMPLAINT [None]
  - PYREXIA [None]
  - RASH [None]
